FAERS Safety Report 5625007-8 (Version None)
Quarter: 2008Q1

REPORT INFORMATION
  Report Type: 
  Country: None (occurrence: None)
  Receive Date: 20080208
  Receipt Date: 20071205
  Transmission Date: 20080703
  Serious: Yes (Disabling)
  Sender: FDA-Public Use
  Company Number: 230001M07PRT

PATIENT
  Age: 20 Year
  Sex: Female
  Weight: 57 kg

DRUGS (1)
  1. REBIF [Suspect]
     Indication: MULTIPLE SCLEROSIS
     Dosage: SUBCUTANEOUS
     Route: 058

REACTIONS (4)
  - HYPERTHERMIA [None]
  - INJECTION SITE INFLAMMATION [None]
  - INJECTION SITE REACTION [None]
  - MYALGIA [None]
